FAERS Safety Report 6318702-9 (Version None)
Quarter: 2009Q3

REPORT INFORMATION
  Report Type: 
  Country: None (occurrence: None)
  Receive Date: 20090821
  Receipt Date: 20090817
  Transmission Date: 20100115
  Serious: Yes (Other)
  Sender: FDA-Public Use
  Company Number: PHHY2009CA34910

PATIENT
  Sex: Female

DRUGS (5)
  1. EXELON [Suspect]
     Indication: DEMENTIA ALZHEIMER'S TYPE
     Dosage: 5 MG, UNK
     Route: 062
     Dates: start: 20090130, end: 20090604
  2. ASPIRIN [Concomitant]
     Dosage: 80 MG, MORNING
  3. DILTIAZEM [Concomitant]
     Dosage: 180 MG, MORNING
  4. BISOPROLOL [Concomitant]
     Dosage: 10 MG, MORNING
  5. COLACE [Concomitant]
     Dosage: 100 MG, BID

REACTIONS (3)
  - APPLICATION SITE EXFOLIATION [None]
  - APPLICATION SITE PRURITUS [None]
  - APPLICATION SITE RASH [None]
